FAERS Safety Report 8033860-6 (Version None)
Quarter: 2011Q4

REPORT INFORMATION
  Report Type: 
  Country: None (occurrence: None)
  Receive Date: 20111228
  Receipt Date: 20111220
  Transmission Date: 20120403
  Serious: Yes (Other)
  Sender: FDA-Public Use
  Company Number: 2010SP066752

PATIENT
  Age: 22 Year
  Sex: Female
  Weight: 103.1026 kg

DRUGS (1)
  1. IMPLANON [Suspect]
     Indication: CONTRACEPTION
     Dates: start: 20100201

REACTIONS (4)
  - DEVICE DIFFICULT TO USE [None]
  - PREGNANCY WITH IMPLANT CONTRACEPTIVE [None]
  - WEIGHT INCREASED [None]
  - ABORTION SPONTANEOUS [None]
